FAERS Safety Report 7556827-0 (Version None)
Quarter: 2011Q2

REPORT INFORMATION
  Report Type: 
  Country: None (occurrence: None)
  Receive Date: 20110620
  Receipt Date: 20110606
  Transmission Date: 20111010
  Serious: Yes (Hospitalization)
  Sender: FDA-Public Use
  Company Number: US-JNJFOC-20110604202

PATIENT
  Sex: Male
  Weight: 60.5 kg

DRUGS (8)
  1. HYDROCORTISONE [Concomitant]
  2. VITAMIN D [Concomitant]
  3. MESALAMINE [Concomitant]
     Route: 048
  4. MULTIPLE VITAMINS [Concomitant]
  5. PREDNISONE [Concomitant]
  6. INFLIXIMAB, RECOMBINANT [Suspect]
     Route: 042
     Dates: start: 20110425
  7. INFLIXIMAB, RECOMBINANT [Suspect]
     Indication: CROHN'S DISEASE
     Route: 042
     Dates: start: 20110103
  8. INFLIXIMAB, RECOMBINANT [Suspect]
     Route: 042
     Dates: start: 20100917

REACTIONS (1)
  - CROHN'S DISEASE [None]
